FAERS Safety Report 9383473 (Version 1)
Quarter: 2013Q3

REPORT INFORMATION
  Report Type: Spontaneous
  Country: SE (occurrence: SE)
  Receive Date: 20130704
  Receipt Date: 20130704
  Transmission Date: 20140515
  Serious: Yes (Death, Other)
  Sender: FDA-Public Use
  Company Number: SE-PFIZER INC-2013194949

PATIENT
  Age: 65 Year
  Sex: Male

DRUGS (15)
  1. DALACIN [Suspect]
     Indication: SEPSIS
     Dosage: 600 MG, 3X/DAY
     Route: 042
     Dates: start: 20130112, end: 20130115
  2. BENSYLPENICILLIN [Suspect]
     Indication: SEPSIS
     Dosage: 3 G, 3X/DAY
     Route: 042
     Dates: start: 20121207, end: 20130110
  3. CLAFORAN [Suspect]
     Indication: SEPSIS
     Dosage: 1 G, 3X/DAY
     Route: 042
     Dates: start: 20121210, end: 20130112
  4. MERONEM [Suspect]
     Indication: SEPSIS
     Dosage: 1 G, 3X/DAY
     Route: 042
     Dates: start: 20130115
  5. ALVEDON [Concomitant]
     Dosage: UNK
  6. PRIMPERAN [Concomitant]
     Dosage: UNK
  7. NEXIUM [Concomitant]
     Dosage: UNK
  8. SIMVASTATIN [Concomitant]
     Dosage: UNK
  9. DIFLUCAN [Concomitant]
     Dosage: UNK
  10. ZOFRAN [Concomitant]
     Dosage: UNK
  11. TROMBYL [Concomitant]
     Dosage: UNK
  12. MORPHINE [Concomitant]
     Dosage: UNK
  13. ACETYLCYSTEINE [Concomitant]
     Dosage: UNK
  14. MOVICOL [Concomitant]
     Dosage: UNK
  15. CILAXORAL [Concomitant]
     Dosage: 7.5 MG/ML, UNKNOWN FREQUENCY

REACTIONS (5)
  - Stevens-Johnson syndrome [Fatal]
  - Cardiovascular insufficiency [None]
  - Respiratory distress [None]
  - Pyrexia [None]
  - General physical health deterioration [None]
